FAERS Safety Report 4482292-6 (Version None)
Quarter: 2004Q4

REPORT INFORMATION
  Report Type: 
  Country: None (occurrence: None)
  Receive Date: 20041020
  Receipt Date: 20041006
  Transmission Date: 20050328
  Serious: Yes (Hospitalization)
  Sender: FDA-Public Use
  Company Number: 2004AC00467

PATIENT
  Age: 56 Year
  Sex: Female

DRUGS (10)
  1. IRESSA ZD2171 [Suspect]
     Indication: CARCINOMA
     Dosage: 30 MG DAILY PO
     Route: 048
     Dates: start: 20040930, end: 20041003
  2. IRESSA [Suspect]
     Indication: ACUTE MYELOID LEUKAEMIA
     Dosage: 250 MG DAILY PO
     Route: 048
     Dates: start: 20040930, end: 20041003
  3. MS CONTIN [Concomitant]
  4. PARACETAMOL [Concomitant]
  5. MAGNESIUM OXIDE [Concomitant]
  6. KEFORAL [Concomitant]
  7. SEVREDOL [Concomitant]
  8. DIAZEPAM [Concomitant]
  9. PRIMPERAN INJ [Concomitant]
  10. VITAMIN C [Concomitant]

REACTIONS (3)
  - CONDITION AGGRAVATED [None]
  - PAIN [None]
  - VULVAL DISORDER [None]
